FAERS Safety Report 17220537 (Version 2)
Quarter: 2020Q1

REPORT INFORMATION
  Report Type: Spontaneous
  Country: US (occurrence: US)
  Receive Date: 20191231
  Receipt Date: 20200302
  Transmission Date: 20200409
  Serious: No
  Sender: FDA-Public Use
  Company Number: US-BRISTOL-MYERS SQUIBB COMPANY-BMS-2019-122891

PATIENT
  Sex: Female

DRUGS (1)
  1. ORENCIA [Suspect]
     Active Substance: ABATACEPT
     Indication: RHEUMATOID ARTHRITIS
     Dosage: UNK UNK, QWK
     Route: 065

REACTIONS (6)
  - Malaise [Unknown]
  - Oral mucosal blistering [Unknown]
  - Thrombocytosis [Unknown]
  - Condition aggravated [Unknown]
  - Respiratory disorder [Unknown]
  - Gait disturbance [Unknown]
